FAERS Safety Report 8531213-5 (Version None)
Quarter: 2012Q3

REPORT INFORMATION
  Report Type: 
  Country: None (occurrence: None)
  Receive Date: 20120723
  Receipt Date: 20120710
  Transmission Date: 20120928
  Serious: Yes (Hospitalization, Other)
  Sender: FDA-Public Use
  Company Number: FR-ELI_LILLY_AND_COMPANY-FR201207002746

PATIENT
  Sex: Male

DRUGS (6)
  1. PROZAC [Suspect]
     Dosage: UNK, UNKNOWN
     Route: 048
     Dates: start: 20120511, end: 20120525
  2. RABEPRAZOLE SODIUM [Concomitant]
     Dosage: 20 MG, UNK
  3. ATORVASTATIN [Concomitant]
     Dosage: 80 MG, QD
     Dates: start: 20120510, end: 20120525
  4. PERINDOPRIL ERBUMINE [Concomitant]
     Dosage: 5 MG, UNK
  5. AMLODIPINE BESYLATE [Concomitant]
     Dosage: 5 MG, UNK
  6. ASPEGIC 1000 [Concomitant]
     Dosage: 250 MG, UNK

REACTIONS (2)
  - CHOLESTASIS [None]
  - DRUG-INDUCED LIVER INJURY [None]
